FAERS Safety Report 12681731 (Version 1)
Quarter: 2016Q3

REPORT INFORMATION
  Report Type: Spontaneous
  Country: FR (occurrence: FR)
  Receive Date: 20160824
  Receipt Date: 20160824
  Transmission Date: 20161109
  Serious: Yes (Hospitalization)
  Sender: FDA-Public Use
  Company Number: FR-INDIVIOR LIMITED-INDV-093912-2016

PATIENT
  Age: 40 Year
  Sex: Male

DRUGS (2)
  1. SUBUTEX [Suspect]
     Active Substance: BUPRENORPHINE HYDROCHLORIDE
     Indication: PRODUCT USED FOR UNKNOWN INDICATION
     Dosage: 4MG PER DAY FOR 4 YEARS
     Route: 042
     Dates: start: 2012, end: 2016
  2. SKENAN [Suspect]
     Active Substance: MORPHINE SULFATE
     Indication: PAIN
     Dosage: 600 MG, DAILY
     Route: 042
     Dates: start: 2016, end: 2016

REACTIONS (3)
  - Arthritis bacterial [Recovering/Resolving]
  - Intentional product use issue [Recovered/Resolved]
  - Osteonecrosis [Recovering/Resolving]

NARRATIVE: CASE EVENT DATE: 2012
